FAERS Safety Report 6831886-9 (Version None)
Quarter: 2010Q3

REPORT INFORMATION
  Report Type: 
  Country: None (occurrence: None)
  Receive Date: 20100712
  Receipt Date: 20100707
  Transmission Date: 20110219
  Serious: Yes (Life-Threatening, Hospitalization, Other)
  Sender: FDA-Public Use
  Company Number: US-ASTRAZENECA-2010SE16717

PATIENT
  Age: 38 Year
  Sex: Female
  Weight: 124.3 kg

DRUGS (16)
  1. CRESTOR [Suspect]
     Indication: HYPERCHOLESTEROLAEMIA
     Route: 048
     Dates: start: 20100406, end: 20100413
  2. CRESTOR [Suspect]
     Indication: DIABETES MELLITUS
     Route: 048
     Dates: start: 20100406, end: 20100413
  3. LISINOPRIL AND HYDROCHLOROTHIAZIDE [Concomitant]
     Dosage: 20/12.5 DAILY
  4. CLONAZEPAM [Concomitant]
     Dosage: 0.25 AS REQUIRED
  5. LORCET-HD [Concomitant]
     Dosage: 10/650 AS REQUIRED
  6. GLUCOPHAGE [Concomitant]
  7. ZANAFLEX [Concomitant]
  8. MAXALT [Concomitant]
  9. LASIX [Concomitant]
  10. DIGOXIN [Concomitant]
     Dosage: 0.375 (1.5 ONCE DAILY)
  11. TOPAMAX [Concomitant]
  12. CYMBALTA [Concomitant]
  13. PREVACID [Concomitant]
  14. ZOFRAN [Concomitant]
  15. LOMOTIL [Concomitant]
     Dosage: 2.5 AS REQUIRED
  16. PHENERGAN [Concomitant]

REACTIONS (1)
  - RENAL FAILURE ACUTE [None]
